FAERS Safety Report 17881809 (Version 3)
Quarter: 2022Q2

REPORT INFORMATION
  Report Type: Report from Study
  Country: US (occurrence: US)
  Receive Date: 20200610
  Receipt Date: 20220601
  Transmission Date: 20220721
  Serious: No
  Sender: FDA-Public Use
  Company Number: US-NOVARTISTESTPH-NVSC2020US161584

PATIENT
  Age: 11 Year
  Sex: Female

DRUGS (2)
  1. ILARIS [Suspect]
     Active Substance: CANAKINUMAB
     Indication: Urticaria thermal
     Dosage: 150 MG, Q4W
     Route: 058
     Dates: start: 20160312
  2. ILARIS [Suspect]
     Active Substance: CANAKINUMAB
     Dosage: 94.8 MG, EVERY 8 WEEKS
     Route: 058
     Dates: start: 20191114

REACTIONS (3)
  - Tongue blistering [Recovering/Resolving]
  - Lip blister [Recovered/Resolved]
  - Inappropriate schedule of product administration [Unknown]

NARRATIVE: CASE EVENT DATE: 20200214
